FAERS Safety Report 21042526 (Version 1)
Quarter: 2022Q3

REPORT INFORMATION
  Report Type: Spontaneous
  Country: US (occurrence: None)
  Receive Date: 20220701
  Receipt Date: 20220701
  Transmission Date: 20221026
  Serious: Yes (Hospitalization)
  Sender: FDA-Public Use
  Company Number: None

PATIENT
  Sex: Female

DRUGS (20)
  1. ACTEMRA [Suspect]
     Active Substance: TOCILIZUMAB
     Indication: Rheumatoid arthritis
     Dosage: OTHER QUANTITY : 162MG/0.9ML;?FREQUENCY : WEEKLY;?
     Route: 058
     Dates: start: 20210209
  2. ACTEMRA INJ [Concomitant]
  3. BD NESTABLE MIS [Concomitant]
  4. DICLOFENAC [Concomitant]
     Active Substance: DICLOFENAC
  5. EPINEPHRINE INJ [Concomitant]
  6. FLORAJEN CAP DIGESIO [Concomitant]
  7. FOLIC ACID TAB [Concomitant]
  8. FUROSEMIDE TAB [Concomitant]
  9. GABAPENTIN [Concomitant]
     Active Substance: GABAPENTIN
  10. LIDOCAINE CRE [Concomitant]
  11. LORATADINE SYP [Concomitant]
  12. LORATADINE TAB [Concomitant]
  13. METHOTREXATE [Concomitant]
     Active Substance: METHOTREXATE
  14. METHYPRED TAB [Concomitant]
  15. OMEPRAZOLE [Concomitant]
     Active Substance: OMEPRAZOLE
  16. ONDANSETRON TAB [Concomitant]
  17. OSCAL TAB [Concomitant]
  18. OXYCODONE TAB [Concomitant]
  19. PREDNISONE [Concomitant]
     Active Substance: PREDNISONE
  20. VERAPAMIL TAB ER [Concomitant]

REACTIONS (2)
  - Surgery [None]
  - Therapy interrupted [None]
